FAERS Safety Report 13949050 (Version 1)
Quarter: 2017Q3

REPORT INFORMATION
  Report Type: Spontaneous
  Country: US (occurrence: US)
  Receive Date: 20170908
  Receipt Date: 20170908
  Transmission Date: 20171128
  Serious: No
  Sender: FDA-Public Use
  Company Number: US-BAYER-2017-172374

PATIENT
  Age: 46 Year
  Sex: Female
  Weight: 88 kg

DRUGS (1)
  1. MIRALAX [Suspect]
     Active Substance: POLYETHYLENE GLYCOL 3350
     Indication: COLONOSCOPY
     Dosage: UNK(17G IN 8 OZ OF WATER DOSE)
     Route: 048
     Dates: start: 2015, end: 2015

REACTIONS (4)
  - Product use in unapproved indication [Unknown]
  - Product use issue [Unknown]
  - Off label use [Unknown]
  - Abdominal distension [Unknown]

NARRATIVE: CASE EVENT DATE: 2015
